FAERS Safety Report 5948406-3 (Version None)
Quarter: 2008Q4

REPORT INFORMATION
  Report Type: 
  Country: None (occurrence: None)
  Receive Date: 20081111
  Receipt Date: 20081031
  Transmission Date: 20090506
  Serious: Yes (Life-Threatening, Hospitalization)
  Sender: FDA-Public Use
  Company Number: DE-VALEANT-2008VX002086

PATIENT
  Age: 61 Year
  Sex: Female
  Weight: 70 kg

DRUGS (3)
  1. PYRIDOSTIGMINE BROMIDE [Suspect]
     Route: 048
  2. TRAZODONE HCL [Suspect]
     Route: 048
  3. PALLADONE [Suspect]
     Route: 048

REACTIONS (5)
  - COMA [None]
  - INCORRECT DOSE ADMINISTERED [None]
  - MUSCLE SPASMS [None]
  - SOMNOLENCE [None]
  - SUICIDE ATTEMPT [None]
